FAERS Safety Report 18346280 (Version 2)
Quarter: 2020Q4

REPORT INFORMATION
  Report Type: Report from Study
  Country: None (occurrence: NL)
  Receive Date: 20201006
  Receipt Date: 20201008
  Transmission Date: 20210114
  Serious: Yes (Other)
  Sender: FDA-Public Use
  Company Number: NL-ABBVIE-20K-114-3593587-00

PATIENT
  Sex: Male

DRUGS (7)
  1. DUODOPA [Suspect]
     Active Substance: CARBIDOPA\LEVODOPA
     Dosage: MD:14.0, CD:4.8, ED:5.0, REMAINED AT 16 HOURS.
     Route: 050
     Dates: start: 2020
  2. DUODOPA [Suspect]
     Active Substance: CARBIDOPA\LEVODOPA
     Dosage: MD:14.0, CD:4.3, ED:5.0, REMAINED AT 16 HOURS.
     Route: 050
     Dates: start: 2020, end: 2020
  3. DUODOPA [Suspect]
     Active Substance: CARBIDOPA\LEVODOPA
     Dosage: MD:14.0, CD:4.6, ED:5.0, REMAINED AT 16 HOURS.
     Route: 050
     Dates: start: 2020, end: 2020
  4. DUODOPA [Suspect]
     Active Substance: CARBIDOPA\LEVODOPA
     Dosage: MD:15.0, CD:4.3, ED:5.0, REMAINED AT 16 HOURS
     Route: 050
     Dates: start: 2020, end: 2020
  5. DUODOPA [Suspect]
     Active Substance: CARBIDOPA\LEVODOPA
     Indication: PARKINSON^S DISEASE
     Dosage: MD: 15.6, CD: 3.1, ED: 4.0, REMAINED AT 16 HOURS
     Route: 050
     Dates: start: 20200706, end: 2020
  6. MACROGOL [Concomitant]
     Active Substance: POLYETHYLENE GLYCOLS
     Indication: ABNORMAL FAECES
     Route: 048
  7. FANTOMALT [Concomitant]
     Indication: WEIGHT DECREASED

REACTIONS (4)
  - Dizziness [Unknown]
  - Cataract [Not Recovered/Not Resolved]
  - Fluid intake reduced [Unknown]
  - Withdrawal syndrome [Unknown]

NARRATIVE: CASE EVENT DATE: 2020
